FAERS Safety Report 21935820 (Version 3)
Quarter: 2023Q1

REPORT INFORMATION
  Report Type: Spontaneous
  Country: US (occurrence: US)
  Receive Date: 20230201
  Receipt Date: 20230316
  Transmission Date: 20230417
  Serious: Yes (Hospitalization)
  Sender: FDA-Public Use
  Company Number: US-Blueprint Medicines Corporation-760

PATIENT
  Age: 53 Year
  Sex: Female

DRUGS (1)
  1. AYVAKIT [Suspect]
     Active Substance: AVAPRITINIB
     Indication: Gastrointestinal stromal tumour
     Route: 065

REACTIONS (9)
  - Feeling abnormal [Unknown]
  - Amnesia [Unknown]
  - Hypersensitivity [Unknown]
  - Arthritis [Unknown]
  - Gastroenteritis viral [Unknown]
  - Herpes zoster [Unknown]
  - Vomiting [Unknown]
  - Impaired driving ability [Unknown]
  - Product dose omission issue [Unknown]

NARRATIVE: CASE EVENT DATE: 20230101
